FAERS Safety Report 7937494-0 (Version None)
Quarter: 2011Q4

REPORT INFORMATION
  Report Type: 
  Country: None (occurrence: None)
  Receive Date: 20111123
  Receipt Date: 20111114
  Transmission Date: 20120403
  Serious: Yes (Hospitalization, Other)
  Sender: FDA-Public Use
  Company Number: GB-ASTRAZENECA-2011SE62895

PATIENT
  Age: 10729 Day
  Sex: Male
  Weight: 70 kg

DRUGS (3)
  1. CITALOPRAM HYDROBROMIDE [Concomitant]
  2. AMOXICILLIN [Concomitant]
     Indication: TOOTHACHE
     Route: 048
     Dates: start: 20111006, end: 20111009
  3. SEROQUEL [Suspect]
     Indication: MAJOR DEPRESSION
     Route: 048

REACTIONS (4)
  - DYSURIA [None]
  - PRIAPISM [None]
  - TOOTHACHE [None]
  - GROIN PAIN [None]
